FAERS Safety Report 5073005-8 (Version None)
Quarter: 2006Q3

REPORT INFORMATION
  Report Type: 
  Country: None (occurrence: None)
  Receive Date: 20060802
  Receipt Date: 20060720
  Transmission Date: 20061208
  Serious: Yes (Hospitalization)
  Sender: FDA-Public Use
  Company Number: 2006089605

PATIENT
  Age: 22 Year
  Sex: Male

DRUGS (1)
  1. NORVASC [Suspect]
     Indication: DRUG USE FOR UNKNOWN INDICATION
     Dosage: 15 MG (5 MG, 3 IN 1 D), ORAL
     Route: 048
     Dates: start: 20051101, end: 20051201

REACTIONS (7)
  - CARDIAC MURMUR [None]
  - DIZZINESS [None]
  - DRUG DISPENSING ERROR [None]
  - HEADACHE [None]
  - MITRAL VALVE INCOMPETENCE [None]
  - SKIN DISCOLOURATION [None]
  - SYNCOPE [None]
